FAERS Safety Report 9156063 (Version 1)
Quarter: 2013Q1

REPORT INFORMATION
  Report Type: Spontaneous
  Country: US (occurrence: US)
  Receive Date: 20130311
  Receipt Date: 20130311
  Transmission Date: 20140127
  Serious: Yes (Other)
  Sender: FDA-Public Use
  Company Number: US-PFIZER INC-2013081500

PATIENT
  Age: 52 Year
  Sex: Male

DRUGS (5)
  1. LIPITOR [Suspect]
     Indication: HYPERCHOLESTEROLAEMIA
     Dosage: 10 MG, DAILY
     Route: 048
     Dates: start: 2007
  2. AZITHROMYCIN [Suspect]
     Indication: COUGH
     Dosage: TWO TABLETS OF 500MG ON FIRST DAY FOLLOWED BY ONE TABLET FOR THE NEXT 6 DAYS
     Route: 048
     Dates: start: 201212, end: 201212
  3. AZITHROMYCIN [Suspect]
     Indication: INFLUENZA
  4. AZITHROMYCIN [Suspect]
     Indication: LOWER RESPIRATORY TRACT INFECTION
  5. JANUMET [Concomitant]
     Indication: DIABETES MELLITUS
     Dosage: UNK

REACTIONS (4)
  - Lower respiratory tract infection [Unknown]
  - Cough [Unknown]
  - Influenza [Unknown]
  - Chest discomfort [Not Recovered/Not Resolved]
